FAERS Safety Report 6172288-0 (Version None)
Quarter: 2009Q2

REPORT INFORMATION
  Report Type: 
  Country: None (occurrence: None)
  Receive Date: 20090424
  Receipt Date: 20081215
  Transmission Date: 20091009
  Serious: No
  Sender: FDA-Public Use
  Company Number: ALL1-2008-03552

PATIENT
  Age: 50 Year
  Sex: Female
  Weight: 71.7 kg

DRUGS (5)
  1. VYVANSE [Suspect]
     Indication: ATTENTION DEFICIT/HYPERACTIVITY DISORDER
     Dosage: 30 MG, 1X/DAY, QD, ORAL; 50 MG, 1X/DAY;QD, ORAL
     Route: 048
     Dates: start: 20080101, end: 20081201
  2. VYVANSE [Suspect]
     Indication: ATTENTION DEFICIT/HYPERACTIVITY DISORDER
     Dosage: 30 MG, 1X/DAY, QD, ORAL; 50 MG, 1X/DAY;QD, ORAL
     Route: 048
     Dates: start: 20081205
  3. LAMICTAL [Concomitant]
  4. SEROQUEL [Concomitant]
  5. . [Concomitant]

REACTIONS (1)
  - DRUG INEFFECTIVE [None]
